FAERS Safety Report 12472294 (Version 5)
Quarter: 2016Q3

REPORT INFORMATION
  Report Type: Spontaneous
  Country: US (occurrence: US)
  Receive Date: 20160616
  Receipt Date: 20160830
  Transmission Date: 20161109
  Serious: Yes (Death, Hospitalization)
  Sender: FDA-Public Use
  Company Number: US-ACTELION-A-NJ2016-137628

PATIENT
  Age: 49 Year
  Sex: Female

DRUGS (12)
  1. POTASSIUM [Concomitant]
     Active Substance: POTASSIUM
  2. OPSUMIT [Suspect]
     Active Substance: MACITENTAN
     Indication: PULMONARY ARTERIAL HYPERTENSION
     Dosage: 10 MG, QD
     Route: 048
     Dates: start: 20160127, end: 201604
  3. NEXIUM [Concomitant]
     Active Substance: ESOMEPRAZOLE MAGNESIUM
  4. CELEXA [Concomitant]
     Active Substance: CITALOPRAM HYDROBROMIDE
  5. BUMETANIDE. [Concomitant]
     Active Substance: BUMETANIDE
  6. SYMBICORT [Concomitant]
     Active Substance: BUDESONIDE\FORMOTEROL FUMARATE DIHYDRATE
  7. SPIRONOLACTONE. [Concomitant]
     Active Substance: SPIRONOLACTONE
  8. VELETRI [Suspect]
     Active Substance: EPOPROSTENOL
     Indication: PULMONARY ARTERIAL HYPERTENSION
     Dosage: 18 NG/KG/MIN
     Route: 042
     Dates: start: 20151001, end: 20160604
  9. SILDENAFIL. [Concomitant]
     Active Substance: SILDENAFIL
  10. XIFAXAN [Concomitant]
     Active Substance: RIFAXIMIN
  11. MAGNESIUM [Concomitant]
     Active Substance: MAGNESIUM
  12. VALIUM [Concomitant]
     Active Substance: DIAZEPAM

REACTIONS (6)
  - Chronic hepatic failure [Fatal]
  - Asthenia [Fatal]
  - Diarrhoea [Fatal]
  - Pneumonia [Unknown]
  - Vomiting [Fatal]
  - Small intestinal obstruction [Unknown]

NARRATIVE: CASE EVENT DATE: 20160530
